FAERS Safety Report 7220704-5 (Version None)
Quarter: 2011Q1

REPORT INFORMATION
  Report Type: 
  Country: None (occurrence: None)
  Receive Date: 20110111
  Receipt Date: 20110104
  Transmission Date: 20110831
  Serious: Yes (Hospitalization, Disabling, Other)
  Sender: FDA-Public Use
  Company Number: US-ELI_LILLY_AND_COMPANY-US201101001350

PATIENT
  Age: 56 Year
  Sex: Male

DRUGS (3)
  1. HUMALOG [Suspect]
     Indication: DIABETES MELLITUS
     Dosage: UNK, AS NEEDED
     Dates: start: 19890101
  2. INSULIN ASPART [Concomitant]
  3. INSULIN GLARGINE [Concomitant]
     Dosage: UNK, 2/D

REACTIONS (14)
  - NEUROPATHY PERIPHERAL [None]
  - TOE AMPUTATION [None]
  - WOUND [None]
  - RETINOPATHY PROLIFERATIVE [None]
  - TREMOR [None]
  - LIMB INJURY [None]
  - LOCALISED INFECTION [None]
  - HYPERSENSITIVITY [None]
  - FEELING COLD [None]
  - BLINDNESS [None]
  - RETINAL DISORDER [None]
  - IMPAIRED HEALING [None]
  - EYE HAEMORRHAGE [None]
  - RETINAL TEAR [None]
